FAERS Safety Report 6708398-6 (Version None)
Quarter: 2010Q2

REPORT INFORMATION
  Report Type: 
  Country: None (occurrence: None)
  Receive Date: 20100503
  Receipt Date: 20090519
  Transmission Date: 20101027
  Serious: No
  Sender: FDA-Public Use
  Company Number: US-ASTRAZENECA-2009UW12990

PATIENT
  Age: 43 Year
  Sex: Male

DRUGS (1)
  1. NEXIUM [Suspect]
     Route: 048
     Dates: start: 20060101

REACTIONS (2)
  - BLOOD TESTOSTERONE DECREASED [None]
  - LIBIDO DECREASED [None]
